FAERS Safety Report 4475617-9 (Version None)
Quarter: 2004Q4

REPORT INFORMATION
  Report Type: 
  Country: None (occurrence: None)
  Receive Date: 20041012
  Receipt Date: 20041004
  Transmission Date: 20050328
  Serious: Yes (Other)
  Sender: FDA-Public Use
  Company Number: 2004040089

PATIENT
  Age: 43 Year
  Sex: Male
  Weight: 58 kg

DRUGS (6)
  1. LIPITOR [Suspect]
     Indication: HYPERLIPIDAEMIA
     Dosage: 10 MG (1 IN 1 D), ORAL
     Route: 048
     Dates: start: 20030416, end: 20040303
  2. GLYBURIDE [Concomitant]
  3. FUROSEMIDE [Concomitant]
  4. IMIDAPRIL HYDROCHLORIDE (IMIDAPRIL HYDROCHLORIDE) [Concomitant]
  5. ALLOPURINOL [Concomitant]
  6. METFORMIN HCL [Concomitant]

REACTIONS (6)
  - DIABETIC NEPHROPATHY [None]
  - INFECTION [None]
  - MYOSITIS [None]
  - RHABDOMYOLYSIS [None]
  - URINARY OCCULT BLOOD POSITIVE [None]
  - URINE OUTPUT INCREASED [None]
